FAERS Safety Report 5508815-3 (Version None)
Quarter: 2007Q4

REPORT INFORMATION
  Report Type: 
  Country: None (occurrence: None)
  Receive Date: 20071107
  Receipt Date: 20071029
  Transmission Date: 20080405
  Serious: Yes (Other)
  Sender: FDA-Public Use
  Company Number: US-JNJFOC-20071007834

PATIENT
  Sex: Female
  Weight: 53.52 kg

DRUGS (17)
  1. FENTANYL TRANSDERMAL SYSTEM [Suspect]
     Indication: OSTEOPOROSIS
     Route: 062
  2. FENTANYL TRANSDERMAL SYSTEM [Suspect]
     Indication: FIBROMYALGIA
     Route: 062
  3. FENTANYL TRANSDERMAL SYSTEM [Suspect]
     Indication: PAIN
     Route: 062
  4. DURAGESIC-100 [Suspect]
     Indication: OSTEOPOROSIS
     Route: 062
  5. DURAGESIC-100 [Suspect]
     Indication: FIBROMYALGIA
     Route: 062
  6. DURAGESIC-100 [Suspect]
     Indication: PAIN
     Route: 062
  7. HYDROCODONE [Concomitant]
     Indication: BREAKTHROUGH PAIN
     Dosage: 10/500MG
     Route: 048
  8. ULTRAM [Concomitant]
     Indication: BREAKTHROUGH PAIN
     Route: 048
  9. LIPITOR [Concomitant]
     Indication: BLOOD CHOLESTEROL INCREASED
     Route: 048
  10. AMBIEN CR [Concomitant]
     Indication: SLEEP DISORDER
     Route: 048
  11. TRAZODONE HCL [Concomitant]
     Indication: SLEEP DISORDER
     Route: 048
  12. NEURONTIN [Concomitant]
     Indication: FIBROMYALGIA
     Route: 048
  13. CELEBREX [Concomitant]
     Indication: ARTHRITIS
     Route: 048
  14. NEXIUM [Concomitant]
     Indication: COLITIS ISCHAEMIC
     Route: 048
  15. DEXAMETHASONE [Concomitant]
     Route: 048
  16. PLAVIX [Concomitant]
     Indication: COLITIS
     Route: 048
  17. SOMA [Concomitant]
     Indication: FIBROMYALGIA
     Route: 048

REACTIONS (5)
  - DRUG DISPENSING ERROR [None]
  - DRUG EFFECT DECREASED [None]
  - EXPIRED DRUG ADMINISTERED [None]
  - OSTEOPOROSIS [None]
  - WEIGHT DECREASED [None]
